FAERS Safety Report 26182809 (Version 1)
Quarter: 2025Q4

REPORT INFORMATION
  Report Type: Spontaneous
  Country: EU (occurrence: EU)
  Receive Date: 20251221
  Receipt Date: 20251221
  Transmission Date: 20260118
  Serious: Yes (Life-Threatening, Hospitalization)
  Sender: ACCORD
  Company Number: None

PATIENT
  Age: 23 Year
  Sex: Male

DRUGS (3)
  1. CISPLATIN [Suspect]
     Active Substance: CISPLATIN
     Indication: Testicular embryonal carcinoma stage III
     Dosage: STRENGTH: 1 MG/ML, EFG, 1?VIAL OF 10 ML, 25 MG/M2 (DAYS 1 TO 5), EVERY 21 DAYS
     Dates: start: 20250910, end: 20250914
  2. IFOSFAMIDE [Suspect]
     Active Substance: IFOSFAMIDE
     Indication: Testicular embryonal carcinoma stage III
     Dosage: STRENGTH: 1,000 MG, 1 VIAL, 1.2G/M2 EVERY 12 HOURS (DAYS 1 TO 5)
     Dates: start: 20250910, end: 20250914
  3. PACLITAXEL [Suspect]
     Active Substance: PACLITAXEL
     Indication: Testicular embryonal carcinoma stage III
     Dosage: 250 MG/M2 ON DAY 1 OF 21-DAY CYCLES, CYCLE 1, 6 MG/ML EFG,1 VIAL OF 16.7 ML
     Dates: start: 20250910, end: 20250910

REACTIONS (3)
  - Agranulocytosis [Recovered/Resolved]
  - Thrombocytopenia [Recovered/Resolved]
  - Skin infection [Recovered/Resolved]

NARRATIVE: CASE EVENT DATE: 20250921
